FAERS Safety Report 14103711 (Version 1)
Quarter: 2017Q4

REPORT INFORMATION
  Report Type: Spontaneous
  Country: DE (occurrence: DE)
  Receive Date: 20171018
  Receipt Date: 20171018
  Transmission Date: 20180321
  Serious: Yes (Other)
  Sender: FDA-Public Use
  Company Number: DE-ABBVIE-17P-062-2128253-00

PATIENT
  Age: 71 Year
  Sex: Female

DRUGS (3)
  1. NEUPOGEN [Concomitant]
     Active Substance: FILGRASTIM
     Indication: PRODUCT USED FOR UNKNOWN INDICATION
  2. VENETOCLAX. [Suspect]
     Active Substance: VENETOCLAX
     Indication: CHRONIC LYMPHOCYTIC LEUKAEMIA
     Route: 048
     Dates: start: 201705, end: 2017
  3. VENETOCLAX. [Suspect]
     Active Substance: VENETOCLAX
     Route: 048
     Dates: start: 2017

REACTIONS (2)
  - Bone marrow failure [Recovered/Resolved]
  - Marrow hyperplasia [Recovered/Resolved]

NARRATIVE: CASE EVENT DATE: 201706
